FAERS Safety Report 20911315 (Version 4)
Quarter: 2024Q4

REPORT INFORMATION
  Report Type: Report from Study
  Country: US (occurrence: US)
  Receive Date: 20220603
  Receipt Date: 20241008
  Transmission Date: 20250115
  Serious: Yes (Other)
  Sender: TAKEDA
  Company Number: US-TAKEDA-2022TUS036945

PATIENT
  Sex: Male

DRUGS (2)
  1. HUMAN IMMUNOGLOBULIN G [Suspect]
     Active Substance: HUMAN IMMUNOGLOBULIN G
     Indication: Immunodeficiency common variable
     Dosage: 70 MILLILITER, 1/WEEK
     Route: 058
     Dates: start: 20171101
  2. HUMAN IMMUNOGLOBULIN G [Suspect]
     Active Substance: HUMAN IMMUNOGLOBULIN G
     Indication: Primary immunodeficiency syndrome
     Dosage: 35 GRAM, 1/WEEK
     Route: 058

REACTIONS (4)
  - Sinus operation [Unknown]
  - Infusion site irritation [Recovered/Resolved]
  - Infusion site pain [Recovered/Resolved]
  - Carpal tunnel syndrome [Recovering/Resolving]
